FAERS Safety Report 5680435-X (Version None)
Quarter: 2008Q1

REPORT INFORMATION
  Report Type: 
  Country: None (occurrence: None)
  Receive Date: 20080326
  Receipt Date: 20080318
  Transmission Date: 20080703
  Serious: Yes (Death, Hospitalization)
  Sender: FDA-Public Use
  Company Number: A0700365A

PATIENT
  Age: 68 Year
  Sex: Male

DRUGS (2)
  1. AVODART [Suspect]
     Route: 048
  2. UNSPECIFIED MEDICATION [Concomitant]

REACTIONS (12)
  - ALPHA-1 ANTI-TRYPSIN INCREASED [None]
  - BRONCHIOLITIS [None]
  - CHRONIC OBSTRUCTIVE PULMONARY DISEASE [None]
  - DIZZINESS [None]
  - DYSPNOEA [None]
  - DYSPNOEA EXERTIONAL [None]
  - LUNG INFILTRATION [None]
  - LUNG INJURY [None]
  - MYCOPLASMA INFECTION [None]
  - RALES [None]
  - RESPIRATORY DISTRESS [None]
  - RESPIRATORY FAILURE [None]
